FAERS Safety Report 14678442 (Version 1)
Quarter: 2018Q1

REPORT INFORMATION
  Report Type: Spontaneous
  Country: FR (occurrence: FR)
  Receive Date: 20180326
  Receipt Date: 20180326
  Transmission Date: 20180509
  Serious: Yes (Other)
  Sender: FDA-Public Use
  Company Number: FR-MERCK KGAA-2044490

PATIENT
  Age: 54 Year
  Sex: Female

DRUGS (2)
  1. LEVOTHYROX NF [Suspect]
     Active Substance: LEVOTHYROXINE SODIUM
     Dates: start: 20170923
  2. NOVOTHYROX [Suspect]
     Active Substance: LEVOTHYROXINE SODIUM
     Indication: PRODUCT USED FOR UNKNOWN INDICATION
     Dates: start: 2017, end: 201708

REACTIONS (31)
  - Tremor [Not Recovered/Not Resolved]
  - Headache [None]
  - Migraine [None]
  - Depressed mood [None]
  - Arthralgia [None]
  - Asthenia [None]
  - Hypogammaglobulinaemia [None]
  - Impaired quality of life [None]
  - Crying [None]
  - Photosensitivity reaction [None]
  - Gastric pH decreased [None]
  - Back pain [None]
  - Fatigue [Not Recovered/Not Resolved]
  - Diarrhoea [Recovering/Resolving]
  - Disturbance in attention [None]
  - Anger [None]
  - Muscle spasms [None]
  - Dizziness [None]
  - Muscle spasms [None]
  - Aggression [None]
  - Psychiatric symptom [None]
  - Loss of libido [None]
  - Social avoidant behaviour [None]
  - Apathy [None]
  - Hypertension [None]
  - Nausea [None]
  - Malaise [None]
  - Anxiety [None]
  - Abdominal pain [Recovering/Resolving]
  - Alpha 1 globulin decreased [None]
  - Limb discomfort [None]

NARRATIVE: CASE EVENT DATE: 20170401
